FAERS Safety Report 15621200 (Version 4)
Quarter: 2019Q1

REPORT INFORMATION
  Report Type: Report from Study
  Country: MX (occurrence: MX)
  Receive Date: 20181115
  Receipt Date: 20190215
  Transmission Date: 20190417
  Serious: Yes (Other)
  Sender: FDA-Public Use
  Company Number: PHHY2018MX150716

PATIENT
  Age: 36 Year
  Sex: Female
  Weight: 50 kg

DRUGS (5)
  1. SANDOSTATIN LAR DEPOT [Suspect]
     Active Substance: OCTREOTIDE ACETATE
     Indication: IMMUNE SYSTEM DISORDER
     Dosage: 1 DF, QMO
     Route: 030
     Dates: start: 201806
  2. FUROSEMIDE. [Concomitant]
     Active Substance: FUROSEMIDE
     Indication: PLEURAL EFFUSION
     Dosage: 40 MG, EVERY 8 HOURS
     Route: 065
     Dates: start: 20190207
  3. AFINITOR [Suspect]
     Active Substance: EVEROLIMUS
     Indication: BREAST CANCER
     Dosage: 2 DF, QD
     Route: 048
     Dates: start: 201809, end: 20181023
  4. AFINITOR [Suspect]
     Active Substance: EVEROLIMUS
     Dosage: 5 MG, QD
     Route: 048
     Dates: start: 201901
  5. AFINITOR [Suspect]
     Active Substance: EVEROLIMUS
     Indication: THYMOMA
     Dosage: 1 DF, EVERY 2 DAYS
     Route: 048

REACTIONS (9)
  - Deafness [Not Recovered/Not Resolved]
  - Tinnitus [Recovered/Resolved]
  - Pain [Recovered/Resolved]
  - Oral pain [Not Recovered/Not Resolved]
  - Weight increased [Unknown]
  - Product use in unapproved indication [Unknown]
  - Sensory ganglionitis [Recovering/Resolving]
  - Deafness [Recovered/Resolved]
  - Inappropriate schedule of product administration [Unknown]

NARRATIVE: CASE EVENT DATE: 201809
